FAERS Safety Report 8683434 (Version 2)
Quarter: 2014Q3

REPORT INFORMATION
  Report Type: Spontaneous
  Country: US (occurrence: US)
  Receive Date: 20120726
  Receipt Date: 20140806
  Transmission Date: 20150326
  Serious: Yes (Hospitalization)
  Sender: FDA-Public Use
  Company Number: US-009507513-1207USA006621

PATIENT
  Sex: Female
  Weight: 93.42 kg

DRUGS (2)
  1. NUVARING [Suspect]
     Active Substance: ETHINYL ESTRADIOL\ETONOGESTREL
     Indication: CONTRACEPTION
     Dosage: UNK
     Dates: start: 200312
  2. FEMRING [Suspect]
     Active Substance: ESTRADIOL ACETATE
     Indication: CONTRACEPTION

REACTIONS (6)
  - Deep vein thrombosis [Unknown]
  - Lymphadenopathy [Unknown]
  - Breast mass [Unknown]
  - Deep vein thrombosis [Not Recovered/Not Resolved]
  - Protein deficiency [Unknown]
  - Urinary tract infection [Unknown]

NARRATIVE: CASE EVENT DATE: 20050628
